FAERS Safety Report 13346806 (Version 1)
Quarter: 2017Q1

REPORT INFORMATION
  Report Type: Spontaneous
  Country: CN (occurrence: CN)
  Receive Date: 20170317
  Receipt Date: 20170317
  Transmission Date: 20170428
  Serious: Yes (Hospitalization, Other)
  Sender: FDA-Public Use
  Company Number: PHHY2017CN034353

PATIENT
  Age: 13 Year
  Sex: Female

DRUGS (5)
  1. TEGRETOL [Suspect]
     Active Substance: CARBAMAZEPINE
     Dosage: 1 DF, UNK (ONE TABLET EVERY TIME)
     Route: 048
     Dates: start: 20161011
  2. DEPAKIN [Suspect]
     Active Substance: VALPROATE SODIUM
     Indication: EPILEPSY
     Route: 048
  3. TEGRETOL [Suspect]
     Active Substance: CARBAMAZEPINE
     Indication: EPILEPSY
     Dosage: UNK
     Route: 048
     Dates: start: 20160929
  4. TEGRETOL [Suspect]
     Active Substance: CARBAMAZEPINE
     Dosage: 0.5 DF, BID (HALF A TABLET EVERY TIME)
     Route: 048
     Dates: start: 20161006
  5. TEGRETOL [Suspect]
     Active Substance: CARBAMAZEPINE
     Dosage: 0.25 DF, BID (A QUARTER OF ONE TABLET EVERY TIME)
     Route: 048
     Dates: start: 20161001

REACTIONS (6)
  - Skin exfoliation [Unknown]
  - Renal impairment [Unknown]
  - Myocardial necrosis marker increased [Unknown]
  - Platelet count decreased [Unknown]
  - Toxic epidermal necrolysis [Recovering/Resolving]
  - Liver injury [Unknown]

NARRATIVE: CASE EVENT DATE: 20161011
